FAERS Safety Report 8572271 (Version 3)
Quarter: 2013Q2

REPORT INFORMATION
  Report Type: Spontaneous
  Country: US (occurrence: US)
  Receive Date: 20120521
  Receipt Date: 20130409
  Transmission Date: 20140414
  Serious: Yes (Hospitalization, Other)
  Sender: FDA-Public Use
  Company Number: US-ABBOTT-12P-163-0935444-00

PATIENT
  Age: 55 Year
  Sex: Female
  Weight: 88.53 kg

DRUGS (11)
  1. NIASPAN (COATED) [Suspect]
     Indication: BLOOD CHOLESTEROL INCREASED
  2. NIASPAN (COATED) [Suspect]
     Indication: BLOOD TRIGLYCERIDES INCREASED
  3. NIASPAN (COATED) [Suspect]
     Indication: HIGH DENSITY LIPOPROTEIN DECREASED
  4. TRILIPIX [Suspect]
     Indication: BLOOD CHOLESTEROL INCREASED
     Dates: start: 2007
  5. TRILIPIX [Suspect]
     Indication: BLOOD TRIGLYCERIDES INCREASED
  6. WARFARIN [Concomitant]
     Indication: CEREBROVASCULAR ACCIDENT
     Dates: end: 20120508
  7. WARFARIN [Concomitant]
     Dates: start: 20120512
  8. CRESTOR [Concomitant]
     Indication: BLOOD CHOLESTEROL INCREASED
  9. NIFEDIPINE [Concomitant]
     Indication: HYPERTENSION
  10. ASA [Concomitant]
     Indication: PRODUCT USED FOR UNKNOWN INDICATION
  11. GEMFIBROZIL [Concomitant]
     Indication: PRODUCT USED FOR UNKNOWN INDICATION

REACTIONS (6)
  - Hypoaesthesia [Recovered/Resolved]
  - Paraesthesia [Recovered/Resolved]
  - Prothrombin time prolonged [Recovered/Resolved]
  - Prothrombin time shortened [Unknown]
  - Sensory disturbance [Recovered/Resolved]
  - Cerebrovascular accident [Recovered/Resolved]
